FAERS Safety Report 24158593 (Version 2)
Quarter: 2025Q1

REPORT INFORMATION
  Report Type: Spontaneous
  Country: US (occurrence: US)
  Receive Date: 20240731
  Receipt Date: 20250217
  Transmission Date: 20250409
  Serious: Yes (Hospitalization)
  Sender: PFIZER
  Company Number: US-PFIZER INC-202400225018

PATIENT
  Age: 72 Year
  Sex: Male

DRUGS (3)
  1. INLYTA [Suspect]
     Active Substance: AXITINIB
     Dosage: 3 TABLETS EVERY 12 HOURS
     Dates: start: 201906
  2. INLYTA [Suspect]
     Active Substance: AXITINIB
     Dosage: TAKE 2 TABLETS EVERY 12 HOURS
     Dates: start: 201906
  3. HYDROXYUREA [Concomitant]
     Active Substance: HYDROXYUREA
     Indication: Bone marrow disorder

REACTIONS (11)
  - Skull fracture [Recovering/Resolving]
  - Fall [Recovering/Resolving]
  - Diarrhoea [Recovering/Resolving]
  - Blood pressure increased [Recovering/Resolving]
  - Arthralgia [Not Recovered/Not Resolved]
  - Chondropathy [Not Recovered/Not Resolved]
  - Arthritis [Not Recovered/Not Resolved]
  - Lung disorder [Unknown]
  - Neoplasm progression [Unknown]
  - Bone density decreased [Unknown]
  - Lymphadenopathy [Unknown]

NARRATIVE: CASE EVENT DATE: 20241201
